FAERS Safety Report 4616156-1 (Version None)
Quarter: 2005Q1

REPORT INFORMATION
  Report Type: 
  Country: None (occurrence: None)
  Receive Date: 20050323
  Receipt Date: 20050316
  Transmission Date: 20050727
  Serious: Yes (Hospitalization)
  Sender: FDA-Public Use
  Company Number: FR-BRISTOL-MYERS SQUIBB COMPANY-12902227

PATIENT
  Age: 60 Year
  Sex: Male
  Weight: 63 kg

DRUGS (6)
  1. ZERIT [Suspect]
     Indication: HIV INFECTION
     Route: 048
     Dates: end: 20050202
  2. SUSTIVA [Suspect]
     Indication: HIV INFECTION
     Route: 048
     Dates: end: 20050202
  3. EPIVIR [Suspect]
     Indication: HIV INFECTION
     Dates: start: 20050127, end: 20050202
  4. DEPAKENE [Concomitant]
  5. TAHOR [Concomitant]
  6. VERATRAN [Concomitant]

REACTIONS (1)
  - RENAL FAILURE ACUTE [None]
